FAERS Safety Report 4442853-7 (Version None)
Quarter: 2004Q3

REPORT INFORMATION
  Report Type: 
  Country: None (occurrence: None)
  Receive Date: 20040903
  Receipt Date: 20040521
  Transmission Date: 20050211
  Serious: Yes (Other)
  Sender: FDA-Public Use
  Company Number: 2004UW10785

PATIENT
  Age: 35 Year
  Sex: Female

DRUGS (1)
  1. CRESTOR [Suspect]

REACTIONS (1)
  - C-REACTIVE PROTEIN INCREASED [None]
